FAERS Safety Report 7477817-2 (Version None)
Quarter: 2011Q2

REPORT INFORMATION
  Report Type: 
  Country: None (occurrence: None)
  Receive Date: 20110513
  Receipt Date: 20110429
  Transmission Date: 20111010
  Serious: Yes (Hospitalization, Other)
  Sender: FDA-Public Use
  Company Number: US-ELI_LILLY_AND_COMPANY-US201105000988

PATIENT

DRUGS (1)
  1. FORTEO [Suspect]
     Indication: OSTEOPOROSIS
     Dosage: UNK UNK, UNKNOWN
     Route: 065
     Dates: start: 20110101

REACTIONS (9)
  - LOSS OF CONSCIOUSNESS [None]
  - HEART RATE INCREASED [None]
  - HYPERHIDROSIS [None]
  - DECREASED APPETITE [None]
  - DEHYDRATION [None]
  - CHILLS [None]
  - DISORIENTATION [None]
  - HYPERSOMNIA [None]
  - LETHARGY [None]
